FAERS Safety Report 18621910 (Version 1)
Quarter: 2020Q4

REPORT INFORMATION
  Report Type: Spontaneous
  Country: US (occurrence: US)
  Receive Date: 20201216
  Receipt Date: 20201216
  Transmission Date: 20210114
  Serious: No
  Sender: FDA-Public Use
  Company Number: US-BIOGEN-2020BI00957328

PATIENT
  Sex: Female

DRUGS (1)
  1. TECFIDERA [Suspect]
     Active Substance: DIMETHYL FUMARATE
     Indication: MULTIPLE SCLEROSIS
     Route: 065

REACTIONS (6)
  - Hypersensitivity [Unknown]
  - Lymphocyte count decreased [Unknown]
  - Drug ineffective [Unknown]
  - Dizziness [Unknown]
  - Flushing [Unknown]
  - Rash pruritic [Unknown]
